FAERS Safety Report 24445402 (Version 1)
Quarter: 2024Q4

REPORT INFORMATION
  Report Type: Report from Study
  Country: AR (occurrence: AR)
  Receive Date: 20241016
  Receipt Date: 20241016
  Transmission Date: 20250114
  Serious: Yes (Other)
  Sender: ELI LILLY AND COMPANY
  Company Number: AR-Merck Healthcare KGaA-2024053518

PATIENT
  Age: 64 Year
  Sex: Male

DRUGS (1)
  1. CETUXIMAB [Suspect]
     Active Substance: CETUXIMAB
     Indication: Colorectal cancer
     Dosage: 438 MG, 2/M
     Route: 042
     Dates: start: 20240809

REACTIONS (7)
  - Malignant neoplasm progression [Unknown]
  - Hepatic pain [Unknown]
  - Chest pain [Unknown]
  - Abdominal pain lower [Unknown]
  - General physical health deterioration [Unknown]
  - Decreased appetite [Unknown]
  - Off label use [Unknown]
